FAERS Safety Report 13233991 (Version 1)
Quarter: 2017Q1

REPORT INFORMATION
  Report Type: Spontaneous
  Country: US (occurrence: US)
  Receive Date: 20170214
  Receipt Date: 20170214
  Transmission Date: 20170428
  Serious: Yes (Other)
  Sender: FDA-Public Use
  Company Number: None

PATIENT
  Age: 56 Year
  Sex: Female
  Weight: 56 kg

DRUGS (10)
  1. OXYCODONE [Concomitant]
     Active Substance: OXYCODONE
  2. AMLODIPINE [Concomitant]
     Active Substance: AMLODIPINE BESYLATE
  3. ASPIRINE [Concomitant]
     Active Substance: ASPIRIN
  4. ONDANSETRON [Concomitant]
     Active Substance: ONDANSETRON
  5. DIPHENOXYLATE-ATROPINE [Concomitant]
  6. IBUPROFEN. [Concomitant]
     Active Substance: IBUPROFEN
  7. PROCHLORPERAZINE. [Concomitant]
     Active Substance: PROCHLORPERAZINE
  8. CREON [Suspect]
     Active Substance: PANCRELIPASE AMYLASE\PANCRELIPASE LIPASE\PANCRELIPASE PROTEASE
  9. CAPECITABINE. [Suspect]
     Active Substance: CAPECITABINE
     Indication: CHEMOTHERAPY
     Dosage: ?          OTHER FREQUENCY:Q12H;?
     Route: 048
     Dates: start: 20170110, end: 20170214
  10. LOPERAMIDE [Concomitant]
     Active Substance: LOPERAMIDE

REACTIONS (1)
  - Diarrhoea [None]

NARRATIVE: CASE EVENT DATE: 20170117
